FAERS Safety Report 13507061 (Version 1)
Quarter: 2017Q2

REPORT INFORMATION
  Report Type: Report from Study
  Country: JP (occurrence: JP)
  Receive Date: 20170503
  Receipt Date: 20170503
  Transmission Date: 20170830
  Serious: Yes (Other)
  Sender: FDA-Public Use
  Company Number: JP-BEH-2017079923

PATIENT
  Sex: Male
  Weight: 63.8 kg

DRUGS (3)
  1. MUCODYNE [Concomitant]
     Active Substance: CARBOCYSTEINE
     Route: 048
  2. BAKTAR [Concomitant]
     Active Substance: SULFAMETHOXAZOLE\TRIMETHOPRIM
     Route: 048
  3. HIZENTRA [Suspect]
     Active Substance: HUMAN IMMUNOGLOBULIN G
     Indication: IMMUNODEFICIENCY COMMON VARIABLE
     Dosage: 40 ML, QW
     Route: 058
     Dates: start: 20150604, end: 20151203

REACTIONS (1)
  - Bronchiectasis [Unknown]
